FAERS Safety Report 16370114 (Version 1)
Quarter: 2019Q2

REPORT INFORMATION
  Report Type: Spontaneous
  Country: IN (occurrence: IN)
  Receive Date: 20190530
  Receipt Date: 20190530
  Transmission Date: 20190711
  Serious: Yes (Hospitalization, Other)
  Sender: FDA-Public Use
  Company Number: IN-SA-2019SA144788

PATIENT
  Age: 25 Year
  Sex: Female

DRUGS (2)
  1. ISONIAZID. [Suspect]
     Active Substance: ISONIAZID
     Indication: SUICIDE ATTEMPT
     Dosage: 300 MG, 1X,, 12 TABLETS
     Route: 048
  2. RIFAMPICIN [Suspect]
     Active Substance: RIFAMPIN
     Indication: SUICIDE ATTEMPT
     Dosage: 600 MG, 1X,12 TABLETS

REACTIONS (12)
  - Vomiting [Recovered/Resolved]
  - Metabolic acidosis [Recovered/Resolved]
  - Kussmaul respiration [Recovered/Resolved]
  - Loss of consciousness [Recovered/Resolved]
  - Hepatic enzyme increased [Recovered/Resolved]
  - Electrolyte imbalance [Recovered/Resolved]
  - Toxicity to various agents [Recovered/Resolved]
  - Coagulation time abnormal [Recovered/Resolved]
  - Pneumonia aspiration [Recovered/Resolved]
  - Drug-induced liver injury [Recovered/Resolved]
  - Generalised tonic-clonic seizure [Recovered/Resolved]
  - Acute hepatic failure [Recovered/Resolved]
